FAERS Safety Report 20526754 (Version 1)
Quarter: 2022Q1

REPORT INFORMATION
  Report Type: Spontaneous
  Country: CN (occurrence: None)
  Receive Date: 20220228
  Receipt Date: 20220228
  Transmission Date: 20220423
  Serious: Yes (Hospitalization)
  Sender: FDA-Public Use
  Company Number: CN-ROCHE-3028187

PATIENT
  Age: 73 Year
  Sex: Male
  Weight: 58 kg

DRUGS (7)
  1. MYCOPHENOLATE MOFETIL [Suspect]
     Active Substance: MYCOPHENOLATE MOFETIL
     Indication: Immunosuppression
     Route: 048
     Dates: start: 20220114
  2. INFLIXIMAB [Suspect]
     Active Substance: INFLIXIMAB
     Indication: Lung neoplasm malignant
     Route: 065
     Dates: start: 20220105
  3. SODIUM CHLORIDE [Concomitant]
     Active Substance: SODIUM CHLORIDE
     Dates: start: 20220105
  4. PACLITAXEL [Concomitant]
     Active Substance: PACLITAXEL
     Indication: Lung neoplasm malignant
     Route: 041
     Dates: start: 20220114
  5. PACLITAXEL [Concomitant]
     Active Substance: PACLITAXEL
     Route: 041
     Dates: start: 20220114
  6. DEXTROSE [Concomitant]
     Active Substance: DEXTROSE
     Dosage: LOT NO. S21100401
     Route: 041
     Dates: start: 20220114
  7. DEXTROSE [Concomitant]
     Active Substance: DEXTROSE
     Dosage: LOT NO. Q21020703
     Route: 041
     Dates: start: 20220114

REACTIONS (3)
  - Rash [Recovering/Resolving]
  - Off label use [Unknown]
  - Intentional product use issue [Unknown]

NARRATIVE: CASE EVENT DATE: 20220205
